FAERS Safety Report 17013329 (Version 1)
Quarter: 2019Q4

REPORT INFORMATION
  Report Type: Report from Study
  Country: CN (occurrence: CN)
  Receive Date: 20191110
  Receipt Date: 20191110
  Transmission Date: 20200122
  Serious: Yes (Other)
  Sender: FDA-Public Use
  Company Number: NVSC2019CN025401

PATIENT
  Age: 61 Year
  Sex: Female

DRUGS (2)
  1. CRIZOTINIB [Concomitant]
     Active Substance: CRIZOTINIB
     Indication: INFLAMMATION
     Route: 065
  2. ZYKADIA [Suspect]
     Active Substance: CERITINIB
     Indication: NON-SMALL CELL LUNG CANCER
     Dosage: 450 MG, QD
     Route: 048

REACTIONS (5)
  - Arteriosclerosis coronary artery [Unknown]
  - Pneumonitis [Unknown]
  - Cystic lung disease [Unknown]
  - Bronchiectasis [Unknown]
  - Aortic arteriosclerosis [Unknown]

NARRATIVE: CASE EVENT DATE: 20191017
